FAERS Safety Report 6613090-2 (Version None)
Quarter: 2010Q1

REPORT INFORMATION
  Report Type: 
  Country: None (occurrence: None)
  Receive Date: 20100304
  Receipt Date: 20100222
  Transmission Date: 20100710
  Serious: Yes (Hospitalization)
  Sender: FDA-Public Use
  Company Number: 2006BI016258

PATIENT
  Age: 26 Year
  Sex: Female

DRUGS (7)
  1. TYSABRI [Suspect]
     Indication: MULTIPLE SCLEROSIS
     Route: 042
     Dates: start: 20061030
  2. ORAL CONTRACEPTIVE NOS [Concomitant]
     Indication: CONTRACEPTION
  3. CALCIUM SUPPLEMENT [Concomitant]
     Indication: DRUG USE FOR UNKNOWN INDICATION
  4. POTASSIUM CHLORIDE [Concomitant]
     Indication: DRUG USE FOR UNKNOWN INDICATION
  5. BACLOFEN [Concomitant]
     Indication: MULTIPLE SCLEROSIS
  6. XANAX [Concomitant]
  7. TYLENOL PM [Concomitant]

REACTIONS (10)
  - ASTHENIA [None]
  - DEHYDRATION [None]
  - DIABETES MELLITUS [None]
  - GAIT DISTURBANCE [None]
  - HEPATIC FAILURE [None]
  - HEPATITIS [None]
  - INFREQUENT BOWEL MOVEMENTS [None]
  - INTERNATIONAL NORMALISED RATIO INCREASED [None]
  - SUPRAVENTRICULAR TACHYCARDIA [None]
  - VISION BLURRED [None]
